FAERS Safety Report 14843963 (Version 1)
Quarter: 2018Q2

REPORT INFORMATION
  Report Type: Spontaneous
  Country: FR (occurrence: FR)
  Receive Date: 20180503
  Receipt Date: 20180503
  Transmission Date: 20180711
  Serious: Yes (Other)
  Sender: FDA-Public Use
  Company Number: PHHY2017FR202898

PATIENT
  Age: 59 Year
  Sex: Female

DRUGS (10)
  1. AVASTIN [Suspect]
     Active Substance: BEVACIZUMAB
     Dosage: 15 MG/KG, UNK
     Route: 065
  2. VITAMIN B1 [Concomitant]
     Active Substance: THIAMINE HYDROCHLORIDE
     Indication: PRODUCT USED FOR UNKNOWN INDICATION
     Dosage: UNK
     Route: 048
  3. VITAMIN B6 [Concomitant]
     Active Substance: PYRIDOXINE HYDROCHLORIDE
     Indication: PRODUCT USED FOR UNKNOWN INDICATION
     Dosage: UNK
     Route: 048
  4. OLAPARIB. [Suspect]
     Active Substance: OLAPARIB
     Indication: OVARIAN CANCER
     Dosage: UNK
     Route: 048
  5. CARBOPLATIN. [Suspect]
     Active Substance: CARBOPLATIN
     Indication: OVARIAN CANCER
     Dosage: UNK
     Route: 065
  6. PACLITAXEL. [Suspect]
     Active Substance: PACLITAXEL
     Indication: OVARIAN CANCER
     Dosage: UNK
     Route: 065
  7. LYRICA [Concomitant]
     Active Substance: PREGABALIN
     Indication: PRODUCT USED FOR UNKNOWN INDICATION
     Route: 048
  8. AVASTIN [Suspect]
     Active Substance: BEVACIZUMAB
     Indication: OVARIAN CANCER
     Dosage: 15 MG/KG, UNK (LAST DOSE PRIOR TO SAE ON 22/DEC/2016)
     Route: 065
  9. OLAPARIB. [Suspect]
     Active Substance: OLAPARIB
     Dosage: UNK (LAST DOSE PRIOR TO SAE ON 02/JAN/2017)
     Route: 048
     Dates: start: 20161222, end: 20170110
  10. FUNGIZONE [Concomitant]
     Active Substance: AMPHOTERICIN B
     Indication: PRODUCT USED FOR UNKNOWN INDICATION
     Dosage: UNK
     Route: 048

REACTIONS (1)
  - Eye infection [Not Recovered/Not Resolved]

NARRATIVE: CASE EVENT DATE: 20170102
